FAERS Safety Report 8983659 (Version 1)
Quarter: 2012Q4

REPORT INFORMATION
  Report Type: 
  Country: US (occurrence: US)
  Receive Date: 20121224
  Receipt Date: 20121224
  Transmission Date: 20130627
  Serious: No
  Sender: FDA-Public Use
  Company Number: US-009507513-1212USA008657

PATIENT
  Sex: Female

DRUGS (2)
  1. NASONEX [Suspect]
     Indication: NASAL CONGESTION
     Dosage: one spray each nostril, qd
     Route: 045
     Dates: start: 20121212, end: 201212
  2. NASONEX [Suspect]
     Dosage: two spray each nostril, qd
     Route: 045
     Dates: start: 201212

REACTIONS (1)
  - Drug ineffective [Recovering/Resolving]
